FAERS Safety Report 12239883 (Version 1)
Quarter: 2016Q2

REPORT INFORMATION
  Report Type: Spontaneous
  Country: US (occurrence: US)
  Receive Date: 20160405
  Receipt Date: 20160405
  Transmission Date: 20160815
  Serious: No
  Sender: FDA-Public Use
  Company Number: US-ROCHE-1590132

PATIENT
  Sex: Female

DRUGS (1)
  1. ROCEPHIN [Suspect]
     Active Substance: CEFTRIAXONE SODIUM
     Indication: SINUSITIS BACTERIAL
     Route: 030
     Dates: start: 20150604

REACTIONS (8)
  - Injection site pain [Not Recovered/Not Resolved]
  - Muscle spasms [Unknown]
  - Pain in extremity [Unknown]
  - Vaginal haemorrhage [Not Recovered/Not Resolved]
  - Paraesthesia [Unknown]
  - Adnexa uteri pain [Unknown]
  - Musculoskeletal stiffness [Unknown]
  - Spinal pain [Unknown]
